FAERS Safety Report 19959242 (Version 1)
Quarter: 2021Q4

REPORT INFORMATION
  Report Type: Spontaneous
  Country: US (occurrence: US)
  Receive Date: 20211013
  Receipt Date: 20211013
  Transmission Date: 20220303
  Serious: No
  Sender: FDA-Public Use
  Company Number: None

PATIENT
  Sex: Female

DRUGS (1)
  1. HUMIRA [Suspect]
     Active Substance: ADALIMUMAB
     Indication: Psoriasis
     Dosage: OTHER DOSE:40MG/0.4ML ;OTHER FREQUENCY:EVERY 14 DAYS;
     Route: 058
     Dates: start: 20210717

REACTIONS (1)
  - Pruritus [None]
